FAERS Safety Report 7355950-3 (Version None)
Quarter: 2011Q1

REPORT INFORMATION
  Report Type: 
  Country: None (occurrence: None)
  Receive Date: 20110310
  Receipt Date: 20110310
  Transmission Date: 20110831
  Serious: Yes (Other)
  Sender: FDA-Public Use
  Company Number: None

PATIENT

DRUGS (1)
  1. SOTALOL HCL [Suspect]
     Dates: start: 20101219

REACTIONS (3)
  - HEART RATE INCREASED [None]
  - PALPITATIONS [None]
  - BLOOD PRESSURE DECREASED [None]
